FAERS Safety Report 5483889-7 (Version None)
Quarter: 2007Q4

REPORT INFORMATION
  Report Type: 
  Country: None (occurrence: None)
  Receive Date: 20071009
  Receipt Date: 20070927
  Transmission Date: 20080405
  Serious: Yes (Other)
  Sender: FDA-Public Use
  Company Number: 2007-03240

PATIENT
  Age: 81 Year
  Sex: Female
  Weight: 35 kg

DRUGS (14)
  1. VELCADE [Suspect]
     Indication: MULTIPLE MYELOMA
     Dosage: 1.60 MG, INTRAVENOUS
     Route: 042
     Dates: start: 20070730, end: 20070802
  2. DEXAMETHASONE 0.5MG TAB [Concomitant]
  3. FAMOTIDINE [Concomitant]
  4. LANIRAPID (METILDIGOXIN) [Concomitant]
  5. MOBIC [Concomitant]
  6. PANTOSIN (PANTETHINE) [Concomitant]
  7. MAGNESIUM OXIDE (MAGNESIUM OXIDE) [Concomitant]
  8. BAKTAR (SULFAMETHOXAZOLE, TRIMETHOPRIM) [Concomitant]
  9. ELCITONIN (ELCATONIN) [Concomitant]
  10. SEROQUEL [Concomitant]
  11. DEPAS (ETIZOLAM) [Concomitant]
  12. HALCION [Concomitant]
  13. GRAMALIL (TIAPRIDE HYDROCHLORIDE) [Concomitant]
  14. YOKUKAN-SAN (HERBAL EXTRACTS NOS) [Concomitant]

REACTIONS (1)
  - LIVER DISORDER [None]
